FAERS Safety Report 7654656-0 (Version None)
Quarter: 2011Q3

REPORT INFORMATION
  Report Type: 
  Country: None (occurrence: None)
  Receive Date: 20110804
  Receipt Date: 20110801
  Transmission Date: 20111222
  Serious: Yes (Death, Hospitalization)
  Sender: FDA-Public Use
  Company Number: US-BRISTOL-MYERS SQUIBB COMPANY-15419526

PATIENT
  Age: 48 Year
  Sex: Male
  Weight: 94 kg

DRUGS (1)
  1. IPILIMUMAB [Suspect]
     Indication: MALIGNANT MELANOMA
     Dosage: 3MG/KG; OFF THE STUDY ON 30NOV2010.
     Route: 042
     Dates: start: 20101117, end: 20101130

REACTIONS (8)
  - NEOPLASM MALIGNANT [None]
  - DIARRHOEA [None]
  - RASH [None]
  - PYREXIA [None]
  - PERIPHERAL MOTOR NEUROPATHY [None]
  - BACK PAIN [None]
  - COLITIS [None]
  - ABDOMINAL PAIN [None]
